FAERS Safety Report 8328741-4 (Version None)
Quarter: 2012Q2

REPORT INFORMATION
  Report Type: 
  Country: None (occurrence: None)
  Receive Date: 20120502
  Receipt Date: 20100827
  Transmission Date: 20120825
  Serious: No
  Sender: FDA-Public Use
  Company Number: US-TEVA-2010004604

PATIENT
  Sex: Male

DRUGS (8)
  1. SIMVASTATIN [Concomitant]
     Dates: start: 20060101
  2. WARFARIN SODIUM [Concomitant]
     Dates: start: 20060101
  3. NUVIGIL [Suspect]
     Route: 048
     Dates: start: 20100301
  4. FUROSEMIDE [Concomitant]
     Dates: start: 20060101
  5. CARVEDILOL [Concomitant]
     Dates: start: 20060101
  6. DIGOXIN [Concomitant]
     Dates: start: 20060101
  7. HYDROCODONE BITARTRATE + ACETAMINOPHEN [Concomitant]
     Dates: start: 20050101
  8. GLIMEPIRIDE [Concomitant]
     Dates: start: 20090101

REACTIONS (1)
  - RASH [None]
